FAERS Safety Report 19944904 (Version 2)
Quarter: 2021Q4

REPORT INFORMATION
  Report Type: Spontaneous
  Country: US (occurrence: None)
  Receive Date: 20211012
  Receipt Date: 20211129
  Transmission Date: 20220304
  Serious: No
  Sender: FDA-Public Use
  Company Number: 2021A757518

PATIENT
  Age: 25657 Day
  Sex: Female
  Weight: 70.3 kg

DRUGS (1)
  1. FARXIGA [Suspect]
     Active Substance: DAPAGLIFLOZIN PROPANEDIOL
     Indication: Type 2 diabetes mellitus
     Route: 048
     Dates: start: 202105

REACTIONS (2)
  - Fungal infection [Unknown]
  - Rash [Unknown]

NARRATIVE: CASE EVENT DATE: 20210927
